FAERS Safety Report 4916608-0 (Version None)
Quarter: 2006Q1

REPORT INFORMATION
  Report Type: 
  Country: None (occurrence: None)
  Receive Date: 20060220
  Receipt Date: 20060208
  Transmission Date: 20060701
  Serious: Yes (Other)
  Sender: FDA-Public Use
  Company Number: JP-JPN-A200600509

PATIENT
  Age: 14 Year
  Sex: Male
  Weight: 47 kg

DRUGS (14)
  1. ALKERAN [Suspect]
     Indication: STEM CELL TRANSPLANT
     Route: 048
     Dates: start: 20050929, end: 20051007
  2. THIOTEPA [Suspect]
     Indication: STEM CELL TRANSPLANT
     Route: 048
     Dates: start: 20050929, end: 20051007
  3. NEUTROGIN [Concomitant]
     Dates: start: 20051012, end: 20051030
  4. COTRIM [Concomitant]
     Route: 048
     Dates: start: 20050926
  5. POLYMYXIN B SULFATE [Concomitant]
     Route: 048
     Dates: start: 20051001, end: 20051030
  6. FUNGIZONE [Concomitant]
     Route: 048
     Dates: start: 20051001, end: 20051030
  7. VANCOMYCIN HYDROCHLORIDE [Concomitant]
     Route: 048
     Dates: start: 20051001, end: 20051030
  8. URSO [Concomitant]
     Route: 048
     Dates: start: 20050926, end: 20051130
  9. VALTREX [Concomitant]
     Route: 048
     Dates: start: 20051001, end: 20051115
  10. PENTCILLIN [Concomitant]
     Dates: start: 20050930, end: 20051013
  11. DIFLUCAN [Concomitant]
     Route: 042
     Dates: start: 20051009, end: 20051026
  12. MAXIPIME [Concomitant]
     Route: 042
     Dates: start: 20051013, end: 20051019
  13. AMIKACIN SULFATE [Concomitant]
     Dates: start: 20051014, end: 20051019
  14. TARGOCID [Concomitant]
     Route: 042
     Dates: start: 20051019, end: 20051111

REACTIONS (3)
  - DIARRHOEA [None]
  - PYREXIA [None]
  - SEPSIS [None]
